FAERS Safety Report 6992909-X (Version None)
Quarter: 2010Q3

REPORT INFORMATION
  Report Type: 
  Country: None (occurrence: None)
  Receive Date: 20100917
  Receipt Date: 20100907
  Transmission Date: 20110219
  Serious: Yes (Other)
  Sender: FDA-Public Use
  Company Number: US-PFIZER INC-2010113501

PATIENT
  Sex: Female

DRUGS (2)
  1. XANAX [Suspect]
  2. XANAX XR [Suspect]

REACTIONS (1)
  - FEELING ABNORMAL [None]
